FAERS Safety Report 7958733-6 (Version None)
Quarter: 2011Q4

REPORT INFORMATION
  Report Type: 
  Country: None (occurrence: None)
  Receive Date: 20111206
  Receipt Date: 20111130
  Transmission Date: 20120403
  Serious: Yes (Hospitalization, Other)
  Sender: FDA-Public Use
  Company Number: JP-BAYER-2011-099254

PATIENT
  Age: 63 Year
  Sex: Female

DRUGS (6)
  1. MIRIPLATIN [Concomitant]
     Indication: THERAPEUTIC EMBOLISATION
     Dosage: UNK, 1 DAY
     Route: 042
     Dates: start: 20101222, end: 20101222
  2. NEXAVAR [Suspect]
     Indication: HEPATIC NEOPLASM MALIGNANT
     Dosage: DAILY DOSE 600 MG
     Route: 048
     Dates: start: 20110107, end: 20110128
  3. NEXAVAR [Suspect]
     Dosage: 200-400 MG
     Dates: start: 20110801
  4. UREPEARL [Concomitant]
     Indication: PROPHYLAXIS
     Dosage: UNK
     Route: 061
     Dates: start: 20110107
  5. NEXAVAR [Suspect]
     Dosage: DAILY DOSE 600 MG
     Route: 048
     Dates: start: 20110305, end: 20110324
  6. NEXAVAR [Suspect]
     Dosage: DAILY DOSE 400 MG
     Route: 048
     Dates: start: 20110422

REACTIONS (10)
  - HEPATECTOMY [None]
  - C-REACTIVE PROTEIN INCREASED [None]
  - ASCITES [None]
  - PALMAR-PLANTAR ERYTHRODYSAESTHESIA SYNDROME [None]
  - DECREASED APPETITE [None]
  - PLATELET COUNT DECREASED [None]
  - IMPAIRED HEALING [None]
  - WOUND INFECTION [None]
  - MALAISE [None]
  - DIARRHOEA [None]
